FAERS Safety Report 6702171-0 (Version None)
Quarter: 2010Q2

REPORT INFORMATION
  Report Type: 
  Country: None (occurrence: None)
  Receive Date: 20100429
  Receipt Date: 20100421
  Transmission Date: 20101027
  Serious: Yes (Death)
  Sender: FDA-Public Use
  Company Number: AU-NAPPMUNDI-USA-2010-0043468

PATIENT
  Age: 20 Year
  Sex: Female

DRUGS (2)
  1. OXYCODONE HYDROCHLORIDE [Suspect]
     Indication: DRUG USE FOR UNKNOWN INDICATION
  2. METHYLENEDIOXYMETHAMPHETAMINE [Suspect]
     Indication: DRUG ABUSE

REACTIONS (3)
  - DRUG ABUSE [None]
  - MULTIPLE DRUG OVERDOSE [None]
  - SEROTONIN SYNDROME [None]
